FAERS Safety Report 6166765-6 (Version None)
Quarter: 2009Q2

REPORT INFORMATION
  Report Type: 
  Country: None (occurrence: None)
  Receive Date: 20090424
  Receipt Date: 20090417
  Transmission Date: 20091009
  Serious: Yes (Hospitalization)
  Sender: FDA-Public Use
  Company Number: TW-PFIZER INC-2009188604

PATIENT

DRUGS (10)
  1. SUNITINIB MALATE [Suspect]
     Indication: HEPATIC NEOPLASM MALIGNANT
     Dosage: 37.5 MG, 1X/DAY
     Route: 048
     Dates: start: 20080912, end: 20090318
  2. INDAPAMIDE [Concomitant]
     Indication: HYPERTENSION
     Dosage: 1.5 MG, 2X/DAY
     Dates: start: 20040101
  3. ISOSORBIDE MONONITRATE [Concomitant]
     Indication: ANGINA PECTORIS
     Dosage: 20 MG, 2X/DAY
     Dates: start: 20040101
  4. CARVEDILOL [Concomitant]
     Indication: HYPERLIPIDAEMIA
     Dosage: 25 MG, 2X/DAY
     Dates: start: 20040101
  5. NIFEDIPINE [Concomitant]
     Indication: HYPERTENSION
     Dosage: 30 MG, 2X/DAY
     Dates: start: 20040101
  6. CANDESARTAN CILEXETIL [Concomitant]
     Indication: HYPERTENSION
     Dosage: 8 MG, 2X/DAY
     Dates: start: 20040101
  7. ACETAMINOPHEN [Concomitant]
     Indication: PAIN
     Dosage: 500 MG, 3X/DAY
     Dates: start: 20090311
  8. MEDROXYPROGESTERONE ACETATE [Concomitant]
     Indication: ANOREXIA
     Dosage: 500 MG, 1X/DAY
     Dates: start: 20090311
  9. ALLOPURINOL [Concomitant]
     Indication: GOUT
     Dosage: 100 MG, 1X/DAY
     Dates: start: 20090225
  10. COUGH MIXTURE A [Suspect]
     Indication: COUGH
     Dosage: 10 ML, 4X/DAY
     Dates: start: 20080911

REACTIONS (1)
  - CHEST PAIN [None]
